FAERS Safety Report 6331751-X (Version None)
Quarter: 2009Q3

REPORT INFORMATION
  Report Type: 
  Country: None (occurrence: None)
  Receive Date: 20090827
  Receipt Date: 20090818
  Transmission Date: 20100115
  Serious: Yes (Hospitalization)
  Sender: FDA-Public Use
  Company Number: JP-ABBOTT-09P-087-0575369-00

PATIENT
  Sex: Male
  Weight: 52 kg

DRUGS (8)
  1. HUMIRA [Suspect]
     Indication: RHEUMATOID ARTHRITIS
     Route: 058
     Dates: start: 20081209, end: 20090403
  2. HUMIRA [Suspect]
     Route: 058
     Dates: start: 20090508
  3. METHOTREXATE SODIUM [Concomitant]
     Indication: RHEUMATOID ARTHRITIS
  4. PREDNISOLONE [Concomitant]
     Indication: RHEUMATOID ARTHRITIS
  5. LOXOPROFEN SODIUM [Concomitant]
     Indication: GASTRITIS PROPHYLAXIS
  6. REBAMIPIDE [Concomitant]
     Indication: RHEUMATOID ARTHRITIS
  7. SODIUM RISEDRONATE HYDRATE [Concomitant]
     Indication: RHEUMATOID ARTHRITIS
  8. LANSOPRAZOLE [Concomitant]
     Indication: GASTRITIS PROPHYLAXIS

REACTIONS (1)
  - ARTHROPATHY [None]
